FAERS Safety Report 23113430 (Version 1)
Quarter: 2023Q4

REPORT INFORMATION
  Report Type: Spontaneous
  Country: AU (occurrence: None)
  Receive Date: 20231027
  Receipt Date: 20231027
  Transmission Date: 20240109
  Serious: Yes (Other)
  Sender: FDA-Public Use
  Company Number: 2023A240170

PATIENT
  Age: 20088 Day
  Sex: Male

DRUGS (7)
  1. BUDESONIDE [Suspect]
     Active Substance: BUDESONIDE
  2. ENTYVIO [Suspect]
     Active Substance: VEDOLIZUMAB
  3. USTEKINUMAB [Suspect]
     Active Substance: USTEKINUMAB
  4. UPADACITINIB [Suspect]
     Active Substance: UPADACITINIB
  5. ADALIMUMAB [Suspect]
     Active Substance: ADALIMUMAB\ISOPROPYL ALCOHOL
  6. AZATHIOPRINE [Suspect]
     Active Substance: AZATHIOPRINE
  7. PREDNISOLONE [Suspect]
     Active Substance: PREDNISOLONE

REACTIONS (8)
  - Tubulointerstitial nephritis [Unknown]
  - Crohn^s disease [Unknown]
  - Osteoporosis [Unknown]
  - Spondyloarthropathy [Unknown]
  - Drug intolerance [Unknown]
  - Sinusitis [Unknown]
  - Loss of therapeutic response [Unknown]
  - Off label use [Unknown]
